FAERS Safety Report 6118964-7 (Version None)
Quarter: 2009Q1

REPORT INFORMATION
  Report Type: 
  Country: None (occurrence: None)
  Receive Date: 20090316
  Receipt Date: 20090306
  Transmission Date: 20090719
  Serious: Yes (Hospitalization)
  Sender: FDA-Public Use
  Company Number: US-TYCO HEALTHCARE/MALLINCKRODT-T200900624

PATIENT
  Sex: Male

DRUGS (1)
  1. METHADONE DISPERSIBLE (ORANGE FLAVORED) [Suspect]
     Indication: PAIN
     Dosage: 40 MG, ONE TAB TID
     Route: 048
     Dates: start: 19940101

REACTIONS (2)
  - DEHYDRATION [None]
  - RENAL FAILURE [None]
